FAERS Safety Report 9522921 (Version 2)
Quarter: 2013Q4

REPORT INFORMATION
  Report Type: Spontaneous
  Country: DE (occurrence: DE)
  Receive Date: 20130913
  Receipt Date: 20131028
  Transmission Date: 20140711
  Serious: Yes (Other)
  Sender: FDA-Public Use
  Company Number: DE-JNJFOC-20130907407

PATIENT
  Sex: Female
  Weight: 62 kg

DRUGS (1)
  1. XARELTO [Suspect]
     Indication: PRODUCT USED FOR UNKNOWN INDICATION
     Route: 048

REACTIONS (4)
  - Blindness [Unknown]
  - Night sweats [Recovered/Resolved]
  - Hypotension [Unknown]
  - Dizziness [Recovered/Resolved]
